FAERS Safety Report 5935171-9 (Version None)
Quarter: 2008Q4

REPORT INFORMATION
  Report Type: 
  Country: None (occurrence: None)
  Receive Date: 20081028
  Receipt Date: 20081015
  Transmission Date: 20090506
  Serious: Yes (Congenital Anomaly)
  Sender: FDA-Public Use
  Company Number: 1000001389

PATIENT

DRUGS (2)
  1. CARBAMAZEPINE [Suspect]
     Indication: CONVULSION
     Dosage: 1200 MILLIGRAM (1200 MG, D)
  2. FOLIC ACID [Concomitant]

REACTIONS (2)
  - HAEMANGIOMA CONGENITAL [None]
  - MATERNAL DRUGS AFFECTING FOETUS [None]
